FAERS Safety Report 9486339 (Version 1)
Quarter: 2013Q3

REPORT INFORMATION
  Report Type: Spontaneous
  Country: US (occurrence: US)
  Receive Date: 20130829
  Receipt Date: 20130829
  Transmission Date: 20140515
  Serious: No
  Sender: FDA-Public Use
  Company Number: US-PFIZER INC-2013248528

PATIENT
  Age: 21 Year
  Sex: Female
  Weight: 81.63 kg

DRUGS (5)
  1. NEURONTIN [Suspect]
     Indication: ANXIETY
     Dosage: 800 MG, 4X/DAY
     Dates: start: 201306, end: 20130731
  2. NEURONTIN [Suspect]
     Indication: DEPRESSION
  3. LYRICA [Suspect]
     Indication: ANXIETY
     Dosage: 200 MG, 3X/DAY
     Route: 048
     Dates: start: 20130801
  4. LYRICA [Suspect]
     Indication: DEPRESSION
  5. SUBOXONE [Concomitant]
     Indication: DRUG DEPENDENCE
     Dosage: 12 MG, 1X/DAY

REACTIONS (2)
  - Off label use [Unknown]
  - Drug screen positive [Unknown]
